FAERS Safety Report 23952610 (Version 1)
Quarter: 2024Q2

REPORT INFORMATION
  Report Type: Spontaneous
  Country: TW (occurrence: TW)
  Receive Date: 20240607
  Receipt Date: 20240607
  Transmission Date: 20240716
  Serious: Yes (Life-Threatening, Hospitalization)
  Sender: FDA-Public Use
  Company Number: TW-PFIZER INC-PV202400074100

PATIENT
  Age: 56 Year
  Sex: Female

DRUGS (3)
  1. METHYLPREDNISOLONE SODIUM SUCCINATE [Suspect]
     Active Substance: METHYLPREDNISOLONE SODIUM SUCCINATE
     Dosage: GIVEN TWICE (TWO COURSES)
     Route: 042
  2. METHYLPREDNISOLONE [Suspect]
     Active Substance: METHYLPREDNISOLONE
     Indication: Severe acute respiratory syndrome
     Dosage: 80 MG, DAILY
  3. RIBAVIRIN [Concomitant]
     Active Substance: RIBAVIRIN
     Indication: Severe acute respiratory syndrome
     Dosage: 1000 MG, DAILY

REACTIONS (3)
  - Therapeutic product effect incomplete [Unknown]
  - Off label use [Unknown]
  - Tracheo-oesophageal fistula [Recovering/Resolving]
